FAERS Safety Report 11852258 (Version 1)
Quarter: 2015Q4

REPORT INFORMATION
  Report Type: Spontaneous
  Country: US (occurrence: US)
  Receive Date: 20151218
  Receipt Date: 20151218
  Transmission Date: 20160305
  Serious: Yes (Other)
  Sender: FDA-Public Use
  Company Number: US-BAYER-2015-486081

PATIENT
  Age: 74 Year
  Sex: Male
  Weight: 83.9 kg

DRUGS (1)
  1. ALEVE [Suspect]
     Active Substance: NAPROXEN SODIUM
     Indication: BACK PAIN
     Dosage: 1 DF, ONCE
     Route: 048
     Dates: start: 20151205, end: 20151205

REACTIONS (5)
  - Discomfort [None]
  - Dyspnoea [Recovered/Resolved]
  - Delirium [Recovered/Resolved]
  - Fear [None]
  - Pruritus [Recovered/Resolved]

NARRATIVE: CASE EVENT DATE: 20151205
